FAERS Safety Report 8787931 (Version 2)
Quarter: 2012Q4

REPORT INFORMATION
  Report Type: 
  Country: US (occurrence: US)
  Receive Date: 20120914
  Receipt Date: 20121005
  Transmission Date: 20130627
  Serious: Yes (Other)
  Sender: FDA-Public Use
  Company Number: US-ROCHE-1126813

PATIENT
  Sex: Female

DRUGS (1)
  1. XOLAIR [Suspect]
     Indication: ASTHMA
     Route: 058
     Dates: start: 20110216

REACTIONS (5)
  - Benign breast neoplasm [Unknown]
  - Oropharyngeal pain [Unknown]
  - Pharyngitis [Unknown]
  - Respiratory disorder [Recovering/Resolving]
  - Wound complication [Unknown]
